FAERS Safety Report 6080431-7 (Version None)
Quarter: 2009Q1

REPORT INFORMATION
  Report Type: 
  Country: None (occurrence: None)
  Receive Date: 20090217
  Receipt Date: 20090209
  Transmission Date: 20090719
  Serious: Yes (Hospitalization, Other)
  Sender: FDA-Public Use
  Company Number: PHBS2009DE00518

PATIENT
  Age: 37 Year
  Sex: Male

DRUGS (5)
  1. CLOZAPINE [Suspect]
     Indication: SCHIZOPHRENIA, PARANOID TYPE
     Dosage: 12.5  MG/DAY
  2. CLOZAPINE [Suspect]
     Indication: HALLUCINATION, AUDITORY
     Dosage: 225 MG/DAY
  3. HALOPERIDOL [Concomitant]
     Indication: SCHIZOPHRENIA
     Dosage: 30 MG DAILY
  4. HALOPERIDOL [Concomitant]
     Dosage: 4 MG DAILY
  5. RISPERIDONE [Concomitant]
     Dosage: 10 MG DAILY

REACTIONS (20)
  - BLOOD CREATINE PHOSPHOKINASE INCREASED [None]
  - BLOOD CREATINE PHOSPHOKINASE MB INCREASED [None]
  - BUNDLE BRANCH BLOCK LEFT [None]
  - C-REACTIVE PROTEIN INCREASED [None]
  - CONDUCTION DISORDER [None]
  - CYANOSIS [None]
  - DIZZINESS [None]
  - GENERAL PHYSICAL HEALTH DETERIORATION [None]
  - HYPOTENSION [None]
  - LEFT VENTRICULAR DYSFUNCTION [None]
  - MALAISE [None]
  - MYOCARDITIS [None]
  - NAUSEA [None]
  - PNEUMONIA PRIMARY ATYPICAL [None]
  - PYREXIA [None]
  - SINUS TACHYCARDIA [None]
  - SUPRAVENTRICULAR EXTRASYSTOLES [None]
  - TACHYCARDIA [None]
  - TROPONIN T INCREASED [None]
  - VENTRICULAR EXTRASYSTOLES [None]
